FAERS Safety Report 10182288 (Version 1)
Quarter: 2014Q2

REPORT INFORMATION
  Report Type: Report from Study
  Country: US (occurrence: US)
  Receive Date: 20140520
  Receipt Date: 20140520
  Transmission Date: 20141212
  Serious: Yes (Other)
  Sender: FDA-Public Use
  Company Number: US-ROCHE-1402476

PATIENT
  Sex: Male

DRUGS (1)
  1. NUTROPIN AQ [Suspect]
     Indication: BODY HEIGHT BELOW NORMAL
     Route: 058
     Dates: start: 201203, end: 2013

REACTIONS (4)
  - Tonsillitis [Unknown]
  - Growth retardation [Unknown]
  - Drug dose omission [Unknown]
  - Snoring [Unknown]
